FAERS Safety Report 10779258 (Version 2)
Quarter: 2015Q1

REPORT INFORMATION
  Report Type: Spontaneous
  Country: US (occurrence: US)
  Receive Date: 20150210
  Receipt Date: 20150210
  Transmission Date: 20150721
  Serious: No
  Sender: FDA-Public Use
  Company Number: US-GLAXOSMITHKLINE-A1080913A

PATIENT

DRUGS (16)
  1. BACTROBAN [Suspect]
     Active Substance: MUPIROCIN\MUPIROCIN CALCIUM
     Indication: SKIN LESION
     Route: 061
     Dates: start: 201406
  2. LASIX [Concomitant]
     Active Substance: FUROSEMIDE
  3. GLIMEPIRIDE. [Concomitant]
     Active Substance: GLIMEPIRIDE
  4. TRILIPIX [Concomitant]
     Active Substance: FENOFIBRIC ACID
  5. CRESTOR [Concomitant]
     Active Substance: ROSUVASTATIN CALCIUM
  6. BENADRYL CREAM [Concomitant]
  7. METOPROLOL TARTRATE. [Concomitant]
     Active Substance: METOPROLOL TARTRATE
  8. NIASPAN [Concomitant]
     Active Substance: NIACIN
  9. POTASSIUM CHLORIDE. [Concomitant]
     Active Substance: POTASSIUM CHLORIDE
  10. WARFARIN [Concomitant]
     Active Substance: WARFARIN
  11. LANTUS [Concomitant]
     Active Substance: INSULIN GLARGINE
  12. HYZAAR [Concomitant]
     Active Substance: HYDROCHLOROTHIAZIDE\LOSARTAN POTASSIUM
  13. ASPIRIN. [Concomitant]
     Active Substance: ASPIRIN
  14. HYDROXYZINE [Concomitant]
     Active Substance: HYDROXYZINE\HYDROXYZINE HYDROCHLORIDE
  15. CYMBALTA [Concomitant]
     Active Substance: DULOXETINE HYDROCHLORIDE
  16. APIDRA [Concomitant]
     Active Substance: INSULIN GLULISINE

REACTIONS (1)
  - Application site pain [Recovering/Resolving]

NARRATIVE: CASE EVENT DATE: 201406
